FAERS Safety Report 8308704-5 (Version None)
Quarter: 2012Q2

REPORT INFORMATION
  Report Type: 
  Country: None (occurrence: None)
  Receive Date: 20120424
  Receipt Date: 20120416
  Transmission Date: 20120825
  Serious: Yes (Hospitalization)
  Sender: FDA-Public Use
  Company Number: US-VERTEX PHARMACEUTICALS INC.-AE-2012-005437

PATIENT
  Sex: Male
  Weight: 116.22 kg

DRUGS (5)
  1. PEGASYS [Concomitant]
     Indication: HEPATITIS C
     Route: 058
     Dates: start: 20120210
  2. POTASSIUM CHLORIDE [Concomitant]
  3. COPEGUS [Concomitant]
     Indication: HEPATITIS C
     Route: 048
     Dates: start: 20120210
  4. LACTULOSE [Concomitant]
  5. INCIVEK [Suspect]
     Indication: HEPATITIS C
     Route: 048
     Dates: start: 20120210

REACTIONS (4)
  - DIARRHOEA [None]
  - CHOLECYSTITIS INFECTIVE [None]
  - ASCITES [None]
  - OEDEMA PERIPHERAL [None]
